FAERS Safety Report 7521704-8 (Version None)
Quarter: 2011Q2

REPORT INFORMATION
  Report Type: 
  Country: None (occurrence: None)
  Receive Date: 20110603
  Receipt Date: 20110519
  Transmission Date: 20111010
  Serious: Yes (Hospitalization)
  Sender: FDA-Public Use
  Company Number: US-JNJFOC-20110509833

PATIENT
  Sex: Male

DRUGS (30)
  1. ACTONEL [Concomitant]
     Route: 048
  2. ASPIRIN [Concomitant]
     Route: 048
  3. TUCKS HC RECTAL OINTMENT [Concomitant]
     Dosage: TO RECTAL AREA SKIN AS NEEDED
     Route: 054
  4. REMICADE [Suspect]
     Indication: COLITIS
     Route: 042
  5. REMICADE [Suspect]
     Route: 042
     Dates: start: 20081001
  6. CANASA [Concomitant]
     Route: 054
  7. PROTONIX [Concomitant]
     Route: 048
  8. FLOMAX [Concomitant]
     Route: 048
  9. NASACORT [Concomitant]
     Dosage: 2 PUFFS DAILY AS NEEDED
     Route: 045
  10. TEGRETOL-XR [Concomitant]
     Route: 048
  11. DILTIAZEM [Concomitant]
     Route: 048
  12. HYDROCHLOROTHIAZIDE [Concomitant]
     Route: 048
  13. SKELAXIN [Concomitant]
     Dosage: 800 MG UP TO THREE TIMES A DAY AS NEEDED
     Route: 048
  14. OCEAN [Concomitant]
     Dosage: 1-2 SPRAYS PER DAY
  15. IMODIUM [Concomitant]
     Route: 048
  16. PENTASA [Concomitant]
     Route: 048
  17. MIRAPEX [Concomitant]
     Route: 048
  18. LACTAID [Concomitant]
  19. TYLENOL-500 [Concomitant]
     Dosage: 325 MG DAILY OR AS NEEDED
     Route: 048
  20. MULTIVITAMINS  WITH IRON [Concomitant]
     Route: 048
  21. BALNEOL [Concomitant]
     Dosage: AFTER EACH BOWEL MOVEMENT
  22. ZOLPIDEM [Concomitant]
     Route: 048
  23. CALCIUM WITH VITAMIN D [Concomitant]
     Route: 048
  24. GLUCOSAMINE + CHONDROITIN COMBO [Concomitant]
     Route: 048
  25. SYSTANE [Concomitant]
     Dosage: 1 DROP EACH EYE AS NEEDED
  26. ALLOPURINOL [Concomitant]
     Route: 048
  27. VYTORIN [Concomitant]
     Route: 048
  28. FOLIC ACID [Concomitant]
     Route: 048
  29. METAMUCIL-2 [Concomitant]
     Dosage: 1 TABLESPOON DAILY
     Route: 048
  30. METROGEL [Concomitant]
     Dosage: APPLY TO FACE DAILY

REACTIONS (1)
  - GASTROENTERITIS [None]
